FAERS Safety Report 11826306 (Version 1)
Quarter: 2015Q4

REPORT INFORMATION
  Report Type: Spontaneous
  Country: PK (occurrence: PK)
  Receive Date: 20151211
  Receipt Date: 20151211
  Transmission Date: 20160305
  Serious: Yes (Death)
  Sender: FDA-Public Use
  Company Number: PK-SA-2015SA209441

PATIENT
  Age: 11 Month
  Sex: Male
  Weight: 5 kg

DRUGS (4)
  1. CAPACE [Concomitant]
     Indication: CARDIOMYOPATHY
     Route: 048
     Dates: start: 20150420
  2. SPIROMIDE [Concomitant]
     Indication: CARDIOMYOPATHY
     Route: 048
     Dates: start: 20150420
  3. DIGOXIN. [Concomitant]
     Active Substance: DIGOXIN
     Indication: CARDIOMYOPATHY
     Route: 048
     Dates: start: 20150420
  4. MYOZYME [Suspect]
     Active Substance: ALGLUCOSIDASE ALFA
     Indication: GLYCOGEN STORAGE DISEASE TYPE II
     Route: 042
     Dates: start: 20150525

REACTIONS (1)
  - Death [Fatal]

NARRATIVE: CASE EVENT DATE: 20151207
